FAERS Safety Report 8077006-7 (Version None)
Quarter: 2012Q1

REPORT INFORMATION
  Report Type: 
  Country: None (occurrence: None)
  Receive Date: 20120127
  Receipt Date: 20120117
  Transmission Date: 20120608
  Serious: Yes (Other)
  Sender: FDA-Public Use
  Company Number: CN-VIIV HEALTHCARE LIMITED-B0777679A

PATIENT

DRUGS (1)
  1. ZIDOVUDINE [Suspect]

REACTIONS (2)
  - ERYTHEMA INFECTIOSUM [None]
  - APLASTIC ANAEMIA [None]
